FAERS Safety Report 18372967 (Version 3)
Quarter: 2022Q3

REPORT INFORMATION
  Report Type: Spontaneous
  Country: US (occurrence: US)
  Receive Date: 20201012
  Receipt Date: 20220908
  Transmission Date: 20221026
  Serious: Yes (Other)
  Sender: FDA-Public Use
  Company Number: US-PFIZER INC-2020389649

PATIENT
  Age: 65 Year
  Sex: Female

DRUGS (1)
  1. IBRANCE [Suspect]
     Active Substance: PALBOCICLIB
     Indication: Psoriatic arthropathy
     Dosage: 75 MG
     Dates: start: 20220408

REACTIONS (6)
  - Psoriatic arthropathy [Unknown]
  - Drug effective for unapproved indication [Unknown]
  - Off label use [Unknown]
  - Malaise [Unknown]
  - Feeling abnormal [Unknown]
  - Depression [Unknown]

NARRATIVE: CASE EVENT DATE: 20220101
